FAERS Safety Report 9018334 (Version 1)
Quarter: 2013Q1

REPORT INFORMATION
  Report Type: Spontaneous
  Country: US (occurrence: None)
  Receive Date: 20130111
  Receipt Date: 20130111
  Transmission Date: 20140127
  Serious: Yes (Hospitalization)
  Sender: FDA-Public Use
  Company Number: None

PATIENT
  Age: 82 Year
  Sex: Male
  Weight: 59.09 kg

DRUGS (3)
  1. WARFARIN [Suspect]
     Indication: THROMBOSIS MESENTERIC VESSEL
     Dosage: 10MG  M-FR  PO?CHRONIC
     Route: 048
  2. WARFARIN [Suspect]
     Indication: THROMBOSIS MESENTERIC VESSEL
     Dosage: 12.5MG  SAT/SUN  PO?CHRONIC
     Route: 048
  3. TYLENOL [Concomitant]

REACTIONS (3)
  - Confusional state [None]
  - Brain oedema [None]
  - Dysphagia [None]
